FAERS Safety Report 6391878-3 (Version None)
Quarter: 2009Q4

REPORT INFORMATION
  Report Type: 
  Country: None (occurrence: None)
  Receive Date: 20091007
  Receipt Date: 20090929
  Transmission Date: 20100525
  Serious: Yes (Other)
  Sender: FDA-Public Use
  Company Number: FR-AMGEN-UK361779

PATIENT
  Sex: Male

DRUGS (5)
  1. ARANESP [Suspect]
     Indication: ANAEMIA OF MALIGNANT DISEASE
     Route: 058
     Dates: start: 20090129, end: 20090313
  2. BLOOD, WHOLE [Concomitant]
     Route: 065
     Dates: start: 20081016
  3. IRON [Concomitant]
     Route: 065
     Dates: start: 20090101, end: 20090312
  4. NEORAL [Concomitant]
     Route: 065
     Dates: start: 20090416
  5. DANAZOL [Concomitant]
     Route: 065

REACTIONS (1)
  - ANTI-ERYTHROPOIETIN ANTIBODY POSITIVE [None]
